FAERS Safety Report 21527199 (Version 1)
Quarter: 2022Q4

REPORT INFORMATION
  Report Type: Spontaneous
  Country: US (occurrence: US)
  Receive Date: 20221031
  Receipt Date: 20221031
  Transmission Date: 20230113
  Serious: No
  Sender: FDA-Public Use
  Company Number: US-GILEAD-2022-0602888

PATIENT
  Age: 58 Year
  Sex: Male

DRUGS (8)
  1. EPCLUSA [Suspect]
     Active Substance: SOFOSBUVIR\VELPATASVIR
     Indication: Chronic hepatitis C
     Dosage: 1 DOSAGE FORM, QD
     Route: 048
  2. GABAPENTIN [Concomitant]
     Active Substance: GABAPENTIN
  3. CORTICOTROPIN [Concomitant]
     Active Substance: CORTICOTROPIN
  4. ATENOLOL [Concomitant]
     Active Substance: ATENOLOL
  5. DOXEPIN [Concomitant]
     Active Substance: DOXEPIN
  6. LORATADINE [Concomitant]
     Active Substance: LORATADINE
  7. BUDESONIDE [Concomitant]
     Active Substance: BUDESONIDE
  8. ALBUTEROL SULFATE [Concomitant]
     Active Substance: ALBUTEROL SULFATE

REACTIONS (3)
  - Headache [Unknown]
  - Nausea [Unknown]
  - Muscle spasms [Unknown]
